FAERS Safety Report 8544598-0 (Version None)
Quarter: 2012Q3

REPORT INFORMATION
  Report Type: 
  Country: None (occurrence: None)
  Receive Date: 20120727
  Receipt Date: 20120718
  Transmission Date: 20120928
  Serious: Yes (Hospitalization)
  Sender: FDA-Public Use
  Company Number: US-UCBSA-062028

PATIENT
  Age: 56 Year
  Sex: Female
  Weight: 81.8 kg

DRUGS (6)
  1. FLEXERIL [Concomitant]
     Indication: INSOMNIA
     Dosage: QHS
     Route: 048
     Dates: start: 20030801
  2. FOLIC ACID [Concomitant]
     Indication: VITAMIN SUPPLEMENTATION
     Route: 048
     Dates: start: 20030301
  3. CIMZIA [Suspect]
     Indication: PSORIATIC ARTHROPATHY
     Route: 058
     Dates: start: 20110105, end: 20120718
  4. ELAVIL [Concomitant]
     Indication: INSOMNIA
     Route: 048
     Dates: start: 19990101
  5. BENTYL [Concomitant]
     Indication: IRRITABLE BOWEL SYNDROME
     Route: 048
     Dates: start: 20020101
  6. AMBIEN [Concomitant]
     Indication: INSOMNIA
     Dosage: QHS
     Route: 048
     Dates: start: 20030101

REACTIONS (1)
  - SUBCUTANEOUS ABSCESS [None]
